FAERS Safety Report 5499885-X (Version None)
Quarter: 2007Q4

REPORT INFORMATION
  Report Type: 
  Country: None (occurrence: None)
  Receive Date: 20071026
  Receipt Date: 20071015
  Transmission Date: 20080405
  Serious: Yes (Other)
  Sender: FDA-Public Use
  Company Number: US-PFIZER INC-2007086862

PATIENT
  Sex: Female
  Weight: 70.454 kg

DRUGS (5)
  1. DILANTIN [Suspect]
     Indication: CONVULSION
  2. PHENOBARBITAL TAB [Interacting]
     Indication: CONVULSION
     Dosage: TEXT:DAILY EVERY DAY
  3. ALL OTHER THERAPEUTIC PRODUCTS [Interacting]
     Indication: SEDATION
  4. ALL OTHER THERAPEUTIC PRODUCTS [Interacting]
     Indication: PAIN
  5. ATENOLOL [Concomitant]

REACTIONS (8)
  - ANTICONVULSANT DRUG LEVEL ABOVE THERAPEUTIC [None]
  - ANTICONVULSANT DRUG LEVEL BELOW THERAPEUTIC [None]
  - ANXIETY [None]
  - DRUG INTERACTION [None]
  - FRACTURE [None]
  - GRAND MAL CONVULSION [None]
  - HEADACHE [None]
  - PAIN [None]
